FAERS Safety Report 9351812 (Version 1)
Quarter: 2013Q2

REPORT INFORMATION
  Report Type: Spontaneous
  Country: CH (occurrence: CH)
  Receive Date: 20130617
  Receipt Date: 20130617
  Transmission Date: 20140414
  Serious: Yes (Disabling, Other)
  Sender: FDA-Public Use
  Company Number: CH-TEVA-412201ISR

PATIENT
  Age: 65 Year
  Sex: Female
  Weight: 64 kg

DRUGS (6)
  1. ONCOVIN [Suspect]
     Indication: NON-HODGKIN^S LYMPHOMA
     Dosage: FIRST CYCLE: 02-APR-2009, SECOND CYCLE: 17-APR-2009, THIRD CYCLE: 09-MAY-2009
     Route: 040
     Dates: start: 20090402, end: 20090509
  2. MABTHERA [Suspect]
     Indication: NON-HODGKIN^S LYMPHOMA
     Dosage: FIRST CYCLE: 01-APR-2009, SECOND CYCLE: 16-APR-2009, THIRD CYCLE: 08-MAY-2009
     Route: 041
     Dates: start: 20090401, end: 20090508
  3. ENDOXAN [Suspect]
     Indication: NON-HODGKIN^S LYMPHOMA
     Dosage: FIRST CYCLE: 2-APR-2009, SECOND CYCLE: 17-APR-2009, THIRD CYCLE: 9-MAY-2009
     Route: 041
     Dates: start: 20090402, end: 20090509
  4. NEULASTA [Suspect]
     Route: 058
     Dates: start: 20090403, end: 20090403
  5. ADRIBLASTIN [Concomitant]
     Indication: NON-HODGKIN^S LYMPHOMA
     Dosage: FIRST CYCLE: 02-APR-2009, SECOND CYCLE: 17-APR-2009, THIRD CCLE: 09-MAY-2009
     Route: 040
     Dates: start: 20090402, end: 20090409
  6. PREDNISONE [Concomitant]
     Dosage: 100 MILLIGRAM DAILY;
     Route: 048
     Dates: start: 20090402, end: 20090406

REACTIONS (5)
  - Pain in extremity [Recovered/Resolved with Sequelae]
  - Polyneuropathy [Recovered/Resolved with Sequelae]
  - Dizziness [Recovered/Resolved with Sequelae]
  - Gait disturbance [Recovered/Resolved with Sequelae]
  - Hypoaesthesia [Recovered/Resolved with Sequelae]
